FAERS Safety Report 9057331 (Version 4)
Quarter: 2013Q2

REPORT INFORMATION
  Report Type: Report from Study
  Country: DE (occurrence: DE)
  Receive Date: 20130204
  Receipt Date: 20130416
  Transmission Date: 20140414
  Serious: Yes (Life-Threatening, Hospitalization)
  Sender: FDA-Public Use
  Company Number: DE-PFIZER INC-2013026315

PATIENT
  Age: 58 Year
  Sex: 0

DRUGS (9)
  1. TEMSIROLIMUS [Suspect]
     Dosage: 25 MG, WEEKLY
     Route: 042
     Dates: start: 20090922, end: 20091013
  2. TEMSIROLIMUS [Suspect]
     Dosage: 20 MG, UNK
     Route: 042
     Dates: start: 20091027
  3. FORTECORTIN [Suspect]
     Dosage: 1 MG, 3X/DAY
     Route: 042
     Dates: start: 20090921, end: 20091116
  4. FRAXIPARIN [Concomitant]
     Dosage: 0.3 UNK, UNK
  5. SIMVASTATIN [Concomitant]
     Dosage: 40 MG, UNK
  6. OMNIC [Concomitant]
     Dosage: 0.5 UNK, UNK
  7. KEPPRA [Concomitant]
     Dosage: 500 MG, UNK
  8. VFEND [Concomitant]
     Dosage: 200 MG, UNK
  9. CLONT [Concomitant]
     Dosage: 400 MG, UNK

REACTIONS (2)
  - Infection [Recovered/Resolved]
  - Pneumonia fungal [Recovered/Resolved]
